FAERS Safety Report 25750305 (Version 1)
Quarter: 2025Q3

REPORT INFORMATION
  Report Type: Spontaneous
  Country: US (occurrence: US)
  Receive Date: 20250902
  Receipt Date: 20250902
  Transmission Date: 20251020
  Serious: Yes (Other)
  Sender: ORGANON
  Company Number: US-ORGANON-O2507USA002538

PATIENT
  Age: 29 Year
  Sex: Female
  Weight: 220.86 kg

DRUGS (1)
  1. NEXPLANON [Suspect]
     Active Substance: ETONOGESTREL
     Indication: Contraception
     Route: 059
     Dates: start: 20220120

REACTIONS (11)
  - Complication of device removal [Not Recovered/Not Resolved]
  - Limb discomfort [Unknown]
  - Amenorrhoea [Not Recovered/Not Resolved]
  - Implant site pain [Unknown]
  - Weight decreased [Unknown]
  - Weight increased [Unknown]
  - Implant site fibrosis [Unknown]
  - Device breakage [Not Recovered/Not Resolved]
  - Device issue [Not Recovered/Not Resolved]
  - Device kink [Not Recovered/Not Resolved]
  - Incorrect product administration duration [Unknown]

NARRATIVE: CASE EVENT DATE: 20220120
